FAERS Safety Report 6180764-X (Version None)
Quarter: 2009Q2

REPORT INFORMATION
  Report Type: 
  Country: None (occurrence: None)
  Receive Date: 20090506
  Receipt Date: 20090127
  Transmission Date: 20091009
  Serious: No
  Sender: FDA-Public Use
  Company Number: A0766628A

PATIENT
  Sex: Female
  Weight: 52.3 kg

DRUGS (2)
  1. AMOXICILLIN [Suspect]
     Indication: DRUG USE FOR UNKNOWN INDICATION
  2. ERYTHROMYCIN [Suspect]
     Indication: DRUG USE FOR UNKNOWN INDICATION

REACTIONS (1)
  - RASH [None]
